FAERS Safety Report 12565421 (Version 1)
Quarter: 2016Q3

REPORT INFORMATION
  Report Type: Spontaneous
  Country: ES (occurrence: ES)
  Receive Date: 20160718
  Receipt Date: 20160718
  Transmission Date: 20161109
  Serious: Yes (Death, Other)
  Sender: FDA-Public Use
  Company Number: ES-ACTAVIS-2016-15664

PATIENT
  Age: 68 Year
  Sex: Female
  Weight: 46 kg

DRUGS (4)
  1. OXYCODONE [Concomitant]
     Active Substance: OXYCODONE
     Dosage: 40 MG, UNK
     Route: 048
  2. GEMCITABINE [Suspect]
     Active Substance: GEMCITABINE\GEMCITABINE HYDROCHLORIDE
     Indication: PANCREATIC CARCINOMA METASTATIC
     Dosage: DAYS 1, 8 AND 15; EVERY 28 DAYS
     Route: 042
     Dates: start: 201311
  3. PACLITAXEL. [Suspect]
     Active Substance: PACLITAXEL
     Indication: PANCREATIC CARCINOMA METASTATIC
     Dosage: DAYS 1, 8 AND 15;EVERY 28 DAYS( NAB-PACLITAXEL)
     Route: 042
     Dates: start: 201311
  4. OXYCODONE [Concomitant]
     Active Substance: OXYCODONE
     Indication: ANALGESIC THERAPY
     Dosage: 5 MG, UNK
     Route: 048

REACTIONS (9)
  - Cholangitis acute [Fatal]
  - Asthenia [Unknown]
  - Diarrhoea [Unknown]
  - Lymphopenia [Unknown]
  - Vomiting [Unknown]
  - Pyrexia [Unknown]
  - Anaemia [Unknown]
  - Hepatotoxicity [Unknown]
  - Oedema peripheral [Unknown]
